FAERS Safety Report 19679175 (Version 1)
Quarter: 2021Q3

REPORT INFORMATION
  Report Type: Report from Study
  Country: BR (occurrence: BR)
  Receive Date: 20210809
  Receipt Date: 20210809
  Transmission Date: 20211014
  Serious: Yes (Other)
  Sender: FDA-Public Use
  Company Number: NVSC2021BR173505

PATIENT
  Age: 58 Year
  Sex: Male

DRUGS (5)
  1. INDAPAMIDE. [Concomitant]
     Active Substance: INDAPAMIDE
     Indication: PRODUCT USED FOR UNKNOWN INDICATION
     Dosage: UNK, QD,1,5 MG
     Route: 065
  2. LOSARTAN. [Suspect]
     Active Substance: LOSARTAN
     Indication: PRODUCT USED FOR UNKNOWN INDICATION
     Dosage: UNK UNK, QD
     Route: 065
  3. METFORMINA XR [Concomitant]
     Indication: PRODUCT USED FOR UNKNOWN INDICATION
     Route: 065
  4. INTERFERON [Concomitant]
     Active Substance: INTERFERON
     Indication: PRODUCT USED FOR UNKNOWN INDICATION
     Dosage: UNK
     Route: 065
     Dates: start: 201412
  5. CLORAMBUCILE [Concomitant]
     Indication: PRODUCT USED FOR UNKNOWN INDICATION
     Dosage: UNK UNK, QD
     Route: 065
     Dates: start: 201504

REACTIONS (13)
  - Malignant melanoma [Unknown]
  - Chest injury [Unknown]
  - Chronic lymphocytic leukaemia [Unknown]
  - Skin disorder [Unknown]
  - Disease progression [Unknown]
  - Necrosis [Unknown]
  - Haemolytic anaemia [Unknown]
  - Pneumonitis [Unknown]
  - Cervix adenomatous polyp [Unknown]
  - Condition aggravated [Unknown]
  - Injury [Unknown]
  - Skin injury [Unknown]
  - Renal impairment [Unknown]

NARRATIVE: CASE EVENT DATE: 201405
